FAERS Safety Report 5474343-7 (Version None)
Quarter: 2007Q4

REPORT INFORMATION
  Report Type: 
  Country: None (occurrence: None)
  Receive Date: 20071002
  Receipt Date: 20070925
  Transmission Date: 20080405
  Serious: Yes (Congenital Anomaly)
  Sender: FDA-Public Use
  Company Number: PHEH2007US12856

PATIENT
  Age: 1 Day
  Sex: Male

DRUGS (3)
  1. TEGRETOL [Suspect]
     Route: 064
  2. PRENATAL VITAMINS [Concomitant]
     Route: 064
  3. FOLIC ACID [Concomitant]
     Route: 064

REACTIONS (2)
  - CRYPTORCHISM [None]
  - DRUG EXPOSURE DURING PREGNANCY [None]
